FAERS Safety Report 8395164-1 (Version None)
Quarter: 2012Q2

REPORT INFORMATION
  Report Type: 
  Country: None (occurrence: None)
  Receive Date: 20120530
  Receipt Date: 20120524
  Transmission Date: 20120825
  Serious: Yes (Other)
  Sender: FDA-Public Use
  Company Number: US-PFIZER INC-2012126355

PATIENT
  Sex: Female

DRUGS (3)
  1. LIPITOR [Suspect]
     Dosage: UNK
  2. NORVASC [Concomitant]
     Dosage: UNK
  3. PROTONIX [Concomitant]
     Dosage: UNK

REACTIONS (4)
  - ABDOMINAL DISTENSION [None]
  - WEIGHT INCREASED [None]
  - ABDOMINAL PAIN UPPER [None]
  - HERNIA [None]
